FAERS Safety Report 4774968-8 (Version None)
Quarter: 2005Q3

REPORT INFORMATION
  Report Type: 
  Country: None (occurrence: None)
  Receive Date: 20050921
  Receipt Date: 20050908
  Transmission Date: 20060218
  Serious: Yes (Other)
  Sender: FDA-Public Use
  Company Number: US-JNJFOC-20050902713

PATIENT
  Sex: Male
  Weight: 95.26 kg

DRUGS (13)
  1. DURAGESIC-100 [Suspect]
     Dosage: WAS USING (2) 75UG/HR PATCHES
     Route: 062
  2. PODOFILOX [Suspect]
     Dosage: APPLIED SMALL AMOUNT TO TONGUE
     Route: 048
     Dates: start: 20050505, end: 20050509
  3. VALIUM [Suspect]
     Indication: PAIN
     Dosage: 5 MG, 1 TO 2 TABLETS, EVERY  6 HOURS AS NECESSARY
  4. FLEXERIL [Suspect]
     Indication: PAIN
     Dosage: ONE (1) TABLET EVERY SIX HOURS AS NECESSARY
  5. WELLBUTRIN [Concomitant]
  6. ZIAC [Concomitant]
  7. ZIAC [Concomitant]
  8. PERCOCET [Concomitant]
  9. PERCOCET [Concomitant]
  10. PROZAC [Concomitant]
  11. LIPITOR [Concomitant]
  12. ZESTRIL [Concomitant]
  13. TRAZODONE HCL [Concomitant]
     Dosage: AS NECESSARY

REACTIONS (7)
  - COORDINATION ABNORMAL [None]
  - DRUG TOXICITY [None]
  - DYSARTHRIA [None]
  - FEELING DRUNK [None]
  - MENTAL STATUS CHANGES [None]
  - RENAL CYST [None]
  - RENAL FAILURE [None]
